FAERS Safety Report 5988436-9 (Version None)
Quarter: 2008Q4

REPORT INFORMATION
  Report Type: 
  Country: None (occurrence: None)
  Receive Date: 20081210
  Receipt Date: 20081202
  Transmission Date: 20090506
  Serious: Yes (Death, Hospitalization, Disabling)
  Sender: FDA-Public Use
  Company Number: JP-BRISTOL-MYERS SQUIBB COMPANY-14413702

PATIENT
  Age: 71 Year
  Sex: Male
  Weight: 57 kg

DRUGS (8)
  1. ERBITUX [Suspect]
     Indication: RECTAL CANCER
     Dosage: 1DF=670 MG/BODY
     Route: 041
     Dates: start: 20081105, end: 20081105
  2. ERBITUX [Suspect]
     Indication: COLON CANCER
     Dosage: 1DF=670 MG/BODY
     Route: 041
     Dates: start: 20081105, end: 20081105
  3. TOPOTECIN [Suspect]
     Indication: RECTAL CANCER
     Dosage: 1 DF=250MG/BODY
     Route: 041
     Dates: start: 20081105, end: 20081105
  4. TOPOTECIN [Suspect]
     Indication: COLON CANCER
     Dosage: 1 DF=250MG/BODY
     Route: 041
     Dates: start: 20081105, end: 20081105
  5. RESTAMIN [Concomitant]
     Indication: PREMEDICATION
     Dosage: TAB
     Route: 048
  6. DEXART [Concomitant]
     Indication: PREMEDICATION
     Route: 042
  7. GRANISETRON HCL [Concomitant]
     Route: 042
     Dates: start: 20081105
  8. NEUPOGEN [Concomitant]
     Dates: start: 20081112, end: 20081118

REACTIONS (6)
  - ACNE [None]
  - BONE MARROW FAILURE [None]
  - CARDIAC FAILURE [None]
  - DIARRHOEA [None]
  - INTESTINAL OBSTRUCTION [None]
  - PNEUMONIA [None]
